FAERS Safety Report 5554978-3 (Version None)
Quarter: 2007Q4

REPORT INFORMATION
  Report Type: 
  Country: None (occurrence: None)
  Receive Date: 20071213
  Receipt Date: 20071203
  Transmission Date: 20080405
  Serious: Yes (Other)
  Sender: FDA-Public Use
  Company Number: GB-WYE-H01558207

PATIENT
  Age: 61 Year
  Sex: Male

DRUGS (5)
  1. AMIODARONE HCL [Suspect]
     Indication: ATRIAL FLUTTER
     Route: 042
     Dates: start: 20071108, end: 20071108
  2. VERAPAMIL [Concomitant]
     Indication: SUPRAVENTRICULAR TACHYCARDIA
     Route: 042
     Dates: start: 20071107
  3. DIGOXIN [Concomitant]
     Indication: SUPRAVENTRICULAR TACHYCARDIA
     Dosage: 500 MCG DAILY
     Route: 048
     Dates: start: 20071108
  4. BISOPROLOL FUMARATE [Concomitant]
     Indication: SUPRAVENTRICULAR TACHYCARDIA
     Route: 048
     Dates: start: 20071107
  5. CLEXANE [Concomitant]
     Route: 058
     Dates: start: 20071107

REACTIONS (6)
  - BRONCHOSPASM [None]
  - CYANOSIS [None]
  - DYSPNOEA [None]
  - EYE ROLLING [None]
  - HYPOTENSION [None]
  - PAIN IN EXTREMITY [None]
